FAERS Safety Report 18593394 (Version 6)
Quarter: 2021Q2

REPORT INFORMATION
  Report Type: Spontaneous
  Country: US (occurrence: US)
  Receive Date: 20201208
  Receipt Date: 20210417
  Transmission Date: 20210717
  Serious: Yes (Death, Hospitalization, Other)
  Sender: FDA-Public Use
  Company Number: US-AMGEN-USASP2020197469

PATIENT
  Age: 63 Year
  Sex: Male
  Weight: 50.7 kg

DRUGS (3)
  1. NEULASTA [Suspect]
     Active Substance: PEGFILGRASTIM
     Dosage: UNK
     Route: 065
  2. NEULASTA [Suspect]
     Active Substance: PEGFILGRASTIM
     Indication: NEUTROPENIA
     Dosage: UNK
     Route: 065
     Dates: end: 20201119
  3. NEULASTA [Suspect]
     Active Substance: PEGFILGRASTIM
     Dosage: UNK
     Route: 065

REACTIONS (4)
  - Lung carcinoma cell type unspecified stage IV [Fatal]
  - Device adhesion issue [Unknown]
  - Unintentional medical device removal [Unknown]
  - Unevaluable event [Unknown]

NARRATIVE: CASE EVENT DATE: 202012
